FAERS Safety Report 9629409 (Version 1)
Quarter: 2013Q4

REPORT INFORMATION
  Report Type: Spontaneous
  Country: US (occurrence: US)
  Receive Date: 20131017
  Receipt Date: 20131017
  Transmission Date: 20140711
  Serious: No
  Sender: FDA-Public Use
  Company Number: US-ASTRAZENECA-2013SE55169

PATIENT
  Age: 62 Year
  Sex: Male
  Weight: 86.2 kg

DRUGS (5)
  1. CRESTOR [Suspect]
     Indication: BLOOD CHOLESTEROL INCREASED
     Route: 048
     Dates: start: 2010
  2. CRESTOR [Suspect]
     Indication: BLOOD CHOLESTEROL INCREASED
     Route: 048
     Dates: start: 2013, end: 20130716
  3. MULTIVITAMIN [Concomitant]
  4. OMEGA 3 [Concomitant]
  5. VITAMIN C [Concomitant]

REACTIONS (4)
  - Arthritis [Unknown]
  - Arthralgia [Unknown]
  - Drug dose omission [Unknown]
  - Intentional drug misuse [Unknown]
